FAERS Safety Report 17230144 (Version 1)
Quarter: 2020Q1

REPORT INFORMATION
  Report Type: Spontaneous
  Country: JP (occurrence: JP)
  Receive Date: 20200103
  Receipt Date: 20200103
  Transmission Date: 20200409
  Serious: Yes (Other)
  Sender: FDA-Public Use
  Company Number: JP-FERRINGPH-2019FE08829

PATIENT
  Age: 82 Year
  Sex: Male

DRUGS (6)
  1. ATORVASTATIN OD [Concomitant]
  2. FERROUS SODIUM CITRATE [Concomitant]
     Active Substance: SODIUM FERROUS CITRATE
  3. SILODOSIN. [Concomitant]
     Active Substance: SILODOSIN
     Dosage: UNK
     Dates: start: 20190410
  4. BETANIS [Concomitant]
     Active Substance: MIRABEGRON
     Dosage: UNK
     Dates: start: 20181219
  5. NEXIUM [Concomitant]
     Active Substance: ESOMEPRAZOLE MAGNESIUM
  6. MINIRINMELT [Suspect]
     Active Substance: DESMOPRESSIN ACETATE
     Indication: DIABETES INSIPIDUS
     Dosage: 60 UG, (1 TABLET) DAILY
     Route: 048
     Dates: start: 20191002, end: 20191003

REACTIONS (2)
  - Water intoxication [Recovered/Resolved]
  - Arrhythmia [Recovered/Resolved]

NARRATIVE: CASE EVENT DATE: 20191002
